FAERS Safety Report 7243460-3 (Version None)
Quarter: 2011Q1

REPORT INFORMATION
  Report Type: 
  Country: None (occurrence: None)
  Receive Date: 20110119
  Receipt Date: 20110119
  Transmission Date: 20110831
  Serious: Yes (Hospitalization, Disabling)
  Sender: FDA-Public Use
  Company Number: None

PATIENT
  Sex: Female
  Weight: 56.6996 kg

DRUGS (1)
  1. ZOMETA [Suspect]
     Indication: OSTEOPENIA
     Dosage: EVERY 3 WEEKS IV
     Route: 042

REACTIONS (3)
  - JAW FRACTURE [None]
  - WEIGHT DECREASED [None]
  - OSTEONECROSIS OF JAW [None]
